FAERS Safety Report 23131132 (Version 1)
Quarter: 2023Q4

REPORT INFORMATION
  Report Type: Spontaneous
  Country: US (occurrence: US)
  Receive Date: 20231031
  Receipt Date: 20231031
  Transmission Date: 20240109
  Serious: No
  Sender: FDA-Public Use
  Company Number: US-SA-SAC20231030002165

PATIENT
  Sex: Female

DRUGS (1)
  1. KEVZARA [Suspect]
     Active Substance: SARILUMAB
     Indication: Rheumatoid arthritis
     Dosage: 200 MG, QOW
     Route: 058
     Dates: start: 202309

REACTIONS (6)
  - Injection site swelling [Unknown]
  - Rash [Unknown]
  - Urticaria [Unknown]
  - Stomatitis [Unknown]
  - Injection site pain [Unknown]
  - Injection site pruritus [Unknown]
